FAERS Safety Report 4534052-5 (Version None)
Quarter: 2004Q4

REPORT INFORMATION
  Report Type: 
  Country: None (occurrence: None)
  Receive Date: 20041220
  Receipt Date: 20041220
  Transmission Date: 20050328
  Serious: Yes (Life-Threatening)
  Sender: FDA-Public Use
  Company Number: None

PATIENT
  Age: 58 Year
  Sex: Female
  Weight: 96.1626 kg

DRUGS (13)
  1. NEUMEGA [Suspect]
     Indication: PROPHYLAXIS
     Dosage: 50 MCG/KG    DAILY   SUBCUTANEO
     Route: 058
  2. NEUMEGA [Suspect]
     Indication: THROMBOCYTOPENIA
     Dosage: 50 MCG/KG    DAILY   SUBCUTANEO
     Route: 058
  3. AROMASIN [Concomitant]
  4. KAYEXALATE [Concomitant]
  5. LOPRESSOR [Concomitant]
  6. CORDARONE [Concomitant]
  7. COMBIVENT [Concomitant]
  8. DESYREL [Concomitant]
  9. DETROL [Concomitant]
  10. PREVACID [Concomitant]
  11. OXYCONTIN [Concomitant]
  12. PROVIGIL [Concomitant]
  13. CELEXA [Concomitant]

REACTIONS (6)
  - ATRIAL FIBRILLATION [None]
  - BLOOD MAGNESIUM INCREASED [None]
  - CATHETER RELATED INFECTION [None]
  - PHARMACEUTICAL PRODUCT COMPLAINT [None]
  - SEPSIS [None]
  - VENTRICULAR FIBRILLATION [None]
